FAERS Safety Report 15310938 (Version 2)
Quarter: 2018Q4

REPORT INFORMATION
  Report Type: Report from Study
  Country: CO (occurrence: CO)
  Receive Date: 20180823
  Receipt Date: 20181217
  Transmission Date: 20190204
  Serious: Yes (Death, Hospitalization, Other)
  Sender: FDA-Public Use
  Company Number: CO-ACTELION-A-CH2018-177866

PATIENT
  Age: 56 Year
  Sex: Female
  Weight: 64 kg

DRUGS (4)
  1. OPSUMIT [Suspect]
     Active Substance: MACITENTAN
     Indication: PULMONARY ARTERIAL HYPERTENSION
     Dosage: 10 MG, QD
     Route: 048
     Dates: start: 2018
  2. OPSUMIT [Suspect]
     Active Substance: MACITENTAN
     Dosage: 10 MG, QD
     Route: 048
     Dates: start: 20180920, end: 20181020
  3. OPSUMIT [Suspect]
     Active Substance: MACITENTAN
     Dosage: 10 MG, QD
     Route: 048
     Dates: start: 20181031, end: 20181121
  4. OXYGEN. [Concomitant]
     Active Substance: OXYGEN
     Indication: CHOKING

REACTIONS (5)
  - Choking [Unknown]
  - Malaise [Unknown]
  - Cardio-respiratory arrest [Fatal]
  - Oxygen saturation decreased [Unknown]
  - Choking sensation [Unknown]

NARRATIVE: CASE EVENT DATE: 201804
